FAERS Safety Report 13582742 (Version 2)
Quarter: 2017Q3

REPORT INFORMATION
  Report Type: Spontaneous
  Country: RU (occurrence: RU)
  Receive Date: 20170525
  Receipt Date: 20170713
  Transmission Date: 20171127
  Serious: Yes (Hospitalization)
  Sender: FDA-Public Use
  Company Number: RU-GE HEALTHCARE LIFE SCIENCES-2017CSU001419

PATIENT

DRUGS (1)
  1. OMNIPAQUE [Suspect]
     Active Substance: IOHEXOL
     Indication: COLON CANCER
     Dosage: 80 ML, SINGLE
     Route: 042
     Dates: start: 20170503, end: 20170503

REACTIONS (5)
  - Localised oedema [Unknown]
  - Feeling hot [Unknown]
  - Erythema [Unknown]
  - Rash [Unknown]
  - Lip oedema [Unknown]

NARRATIVE: CASE EVENT DATE: 20170503
